FAERS Safety Report 7079178-X (Version None)
Quarter: 2010Q4

REPORT INFORMATION
  Report Type: 
  Country: None (occurrence: None)
  Receive Date: 20101102
  Receipt Date: 20101026
  Transmission Date: 20110411
  Serious: Yes (Other)
  Sender: FDA-Public Use
  Company Number: A0890006A

PATIENT
  Age: 55 Year
  Sex: Female

DRUGS (1)
  1. VENTOLIN [Suspect]
     Dosage: 90MCG UNKNOWN
     Route: 055
     Dates: start: 20100402

REACTIONS (3)
  - ANKLE FRACTURE [None]
  - INHALATION THERAPY [None]
  - PNEUMONIA [None]
